FAERS Safety Report 7583880-0 (Version None)
Quarter: 2011Q2

REPORT INFORMATION
  Report Type: 
  Country: None (occurrence: None)
  Receive Date: 20110628
  Receipt Date: 20110628
  Transmission Date: 20111010
  Serious: Yes (Other)
  Sender: FDA-Public Use
  Company Number: None

PATIENT
  Age: 27 Year
  Sex: Female
  Weight: 52.1637 kg

DRUGS (2)
  1. VYVANSE [Suspect]
     Indication: IMPAIRED WORK ABILITY
     Dosage: 1 CAPSULE ONCE A DAY PO
     Route: 048
     Dates: start: 20091201, end: 20110624
  2. VYVANSE [Suspect]
     Indication: DISTURBANCE IN ATTENTION
     Dosage: 1 CAPSULE ONCE A DAY PO
     Route: 048
     Dates: start: 20091201, end: 20110624

REACTIONS (2)
  - IMPAIRED WORK ABILITY [None]
  - HYPERHIDROSIS [None]
